FAERS Safety Report 9410603 (Version 1)
Quarter: 2013Q3

REPORT INFORMATION
  Report Type: Report from Study
  Country: US (occurrence: US)
  Receive Date: 20130719
  Receipt Date: 20130719
  Transmission Date: 20140515
  Serious: Yes (Death, Hospitalization)
  Sender: FDA-Public Use
  Company Number: US-BRISTOL-MYERS SQUIBB COMPANY-19105782

PATIENT
  Age: 41 Year
  Sex: Female
  Weight: 64.1 kg

DRUGS (22)
  1. NIVOLUMAB [Suspect]
     Indication: NON-SMALL CELL LUNG CANCER
     Route: 042
     Dates: start: 20130607, end: 20130628
  2. IPILIMUMAB [Suspect]
     Indication: NON-SMALL CELL LUNG CANCER
     Dosage: 3MG/KG
     Route: 042
     Dates: start: 20130607, end: 20130628
  3. EFFEXOR [Concomitant]
     Dosage: 225MG
     Route: 048
     Dates: start: 200406
  4. KLONOPIN [Concomitant]
     Dosage: DOSAGE:TWICE/DAY PRN
     Route: 048
     Dates: start: 201304
  5. MULTIVITAMINS + FOLATE [Concomitant]
     Dosage: 1DF: 1TAB
     Route: 048
     Dates: start: 201304
  6. LORCET [Concomitant]
     Dosage: 1DF: 1CAPS?DOSAGE: EVERY 6HOURS/PRN
     Route: 048
     Dates: start: 20130628
  7. BIAXIN [Concomitant]
     Route: 048
     Dates: start: 20130628
  8. TYLENOL [Concomitant]
     Dosage: DOSAGE:PER 6HOURS/PRN
     Route: 048
     Dates: start: 20130711
  9. VANCOMYCIN [Concomitant]
     Route: 042
     Dates: start: 20130714, end: 20130714
  10. FENTANYL [Concomitant]
     Route: 042
     Dates: start: 20130714, end: 20130714
  11. COMPAZINE [Concomitant]
     Dosage: DOSAGE:PER 6HOURS/PRN
     Route: 048
     Dates: start: 20130714
  12. DIFLUCAN [Concomitant]
     Route: 042
     Dates: start: 20130712
  13. HEPARIN [Concomitant]
     Dosage: 1 DF: 80U/KG
     Route: 042
     Dates: start: 20130714, end: 20130714
  14. ONDANSETRON [Concomitant]
     Dosage: DOSAGE:PER 8HOURS,PRN
     Route: 042
     Dates: start: 20130712
  15. ADVIL [Concomitant]
     Route: 048
  16. BIAXIN [Concomitant]
     Dosage: BIAXIN XL PAK 500MG ORAL TAB EXTENDED RELEASE?DOSAGE:2TABS
     Route: 048
  17. COMBIVENT [Concomitant]
     Dosage: 1 DF:2 PUFFS?DOSAGE:18MCG-103MCG/INH INHALATION AEROSOL
     Route: 055
  18. MOUTHWASH [Concomitant]
     Dosage: MARY^S MOUTHWASH MUCOUS MEMBRANE SUSPENSION
  19. GUAIFENESIN [Concomitant]
     Dosage: GRANULE?DOSAGE:1 TAB
     Route: 048
  20. LORTAB [Concomitant]
     Dosage: 1 DF: 1 TAB?LORTAB 5/500
     Route: 048
  21. PREDNISONE [Concomitant]
     Dosage: 1 DF: 2 TAB?20MG PO TAB 40MG
     Route: 048
  22. RANITIDINE [Concomitant]
     Dosage: 1 DF: 1 TAB
     Route: 048

REACTIONS (2)
  - Respiratory failure [Fatal]
  - Colitis [Not Recovered/Not Resolved]
